FAERS Safety Report 8505795-3 (Version None)
Quarter: 2012Q3

REPORT INFORMATION
  Report Type: 
  Country: None (occurrence: None)
  Receive Date: 20120712
  Receipt Date: 20120705
  Transmission Date: 20120928
  Serious: Yes (Hospitalization, Other)
  Sender: FDA-Public Use
  Company Number: US-BAYER-2011-088312

PATIENT
  Age: 25 Year
  Sex: Female
  Weight: 95.238 kg

DRUGS (15)
  1. DIURETICS [Concomitant]
     Dosage: UNK
  2. YAZ [Suspect]
     Dosage: UNK
     Dates: start: 20060101, end: 20080101
  3. METFORMIN HCL [Concomitant]
     Indication: DIABETES MELLITUS
     Dosage: UNK
     Dates: start: 20060101
  4. GLUCOPHAGE [Concomitant]
     Dosage: 500 MG, DAILY
  5. NORVASC [Concomitant]
     Indication: ANGINA PECTORIS
  6. NASACORT [Concomitant]
     Dosage: 2 SPRAYS IN EACH NOSTRIL DAILY
     Route: 045
  7. CLARITIN [Concomitant]
     Dosage: 10 MG,DAILY
  8. FISH OIL [Concomitant]
     Dosage: 1000 MG, DAILY
  9. CALCIUM WITH VITAMIN D [Concomitant]
     Dosage: 600 MG, DAILY
  10. MULTI-VITAMIN [Concomitant]
     Dosage: UNK UNK, QD
  11. NYSTATIN [Concomitant]
     Dosage: UNK UNK, PRN
     Route: 061
  12. ALBERTROL [Concomitant]
     Indication: ASTHMA
     Dosage: UNK
  13. SPIRONOLACTONE [Concomitant]
     Indication: FLUID RETENTION
     Dosage: UNK
     Dates: start: 20060101
  14. NORVASC [Concomitant]
     Indication: HYPERTENSION
     Dosage: UNK
     Dates: start: 20060101
  15. NSAID'S [Concomitant]
     Dosage: UNK

REACTIONS (10)
  - BILIARY SEPSIS [None]
  - CHOLECYSTITIS [None]
  - CHOLECYSTITIS ACUTE [None]
  - DEEP VEIN THROMBOSIS [None]
  - GENERAL PHYSICAL HEALTH DETERIORATION [None]
  - PAIN [None]
  - INTRACARDIAC THROMBUS [None]
  - EMOTIONAL DISTRESS [None]
  - ANHEDONIA [None]
  - ANXIETY [None]
